FAERS Safety Report 6123146-9 (Version None)
Quarter: 2009Q1

REPORT INFORMATION
  Report Type: 
  Country: None (occurrence: None)
  Receive Date: 20090318
  Receipt Date: 20090305
  Transmission Date: 20090719
  Serious: Yes (Other)
  Sender: FDA-Public Use
  Company Number: US-PFIZER INC-2009180349

PATIENT
  Sex: Male
  Weight: 84.807 kg

DRUGS (15)
  1. TIKOSYN [Suspect]
     Indication: ATRIAL FIBRILLATION
     Dosage: 0.5 MG, 2X/DAY
     Dates: start: 20030414
  2. TIKOSYN [Suspect]
     Indication: ATRIAL FLUTTER
  3. FUROSEMIDE [Concomitant]
     Dosage: UNK
     Dates: start: 20090101
  4. RIFAMPIN [Concomitant]
     Dates: start: 20040101
  5. BENICAR HCT [Concomitant]
     Dosage: UNK
  6. COUMADIN [Concomitant]
     Dosage: UNK
  7. NORVASC [Concomitant]
     Dosage: UNK
  8. SIMVASTATIN [Concomitant]
     Dosage: UNK
  9. POTASSIUM CHLORIDE [Concomitant]
     Dosage: UNK
  10. ADVAIR HFA [Concomitant]
     Dosage: UNK
  11. ATENOLOL [Concomitant]
     Dosage: UNK
  12. SAW PALMETTO [Concomitant]
     Dosage: UNK
  13. VITAMIN B6 [Concomitant]
     Dosage: UNK
  14. BIOTIN [Concomitant]
     Dosage: UNK
  15. FOLIC ACID [Concomitant]
     Dosage: UNK

REACTIONS (2)
  - DRUG ADMINISTRATION ERROR [None]
  - PLEURAL EFFUSION [None]
